FAERS Safety Report 4751078-7 (Version None)
Quarter: 2005Q3

REPORT INFORMATION
  Report Type: 
  Country: None (occurrence: None)
  Receive Date: 20050822
  Receipt Date: 20050805
  Transmission Date: 20060218
  Serious: Yes (Hospitalization)
  Sender: FDA-Public Use
  Company Number: DSA_26868_2005

PATIENT
  Sex: Female

DRUGS (6)
  1. VASOTEC RPD [Suspect]
     Dosage: DF ONCE
     Dates: start: 20050612, end: 20050612
  2. COREG [Suspect]
     Dosage: 25 MG ONCE PO
     Route: 048
     Dates: start: 20050612, end: 20050612
  3. ALDACTONE [Suspect]
     Dosage: DF ONCE
     Dates: start: 20050612, end: 20050612
  4. NEURONTIN [Suspect]
     Dosage: DF
     Dates: start: 20050612, end: 20050612
  5. TOPROL-XL [Concomitant]
  6. INSULIN [Concomitant]

REACTIONS (7)
  - BLOOD PRESSURE INCREASED [None]
  - DIZZINESS [None]
  - DRUG ADMINISTRATION ERROR [None]
  - HEADACHE [None]
  - HYPOTENSION [None]
  - SWELLING FACE [None]
  - VISION BLURRED [None]
